FAERS Safety Report 22035014 (Version 2)
Quarter: 2023Q1

REPORT INFORMATION
  Report Type: Spontaneous
  Country: None (occurrence: GB)
  Receive Date: 20230224
  Receipt Date: 20230306
  Transmission Date: 20230417
  Serious: Yes (Other)
  Sender: FDA-Public Use
  Company Number: GB-Therakind Limited-2138400

PATIENT
  Age: 45 Year
  Sex: Female

DRUGS (4)
  1. METHOTREXATE [Suspect]
     Active Substance: METHOTREXATE
     Indication: Psoriasis
  2. ADALIMUMAB [Suspect]
     Active Substance: ADALIMUMAB
  3. CYCLOSPORINE [Suspect]
     Active Substance: CYCLOSPORINE
  4. USTEKINUMAB [Suspect]
     Active Substance: USTEKINUMAB

REACTIONS (11)
  - Treatment failure [Unknown]
  - Enthesopathy [Unknown]
  - Synovitis [Unknown]
  - Inflammation [Unknown]
  - Sacroiliitis [Unknown]
  - Arthralgia [Unknown]
  - Spinal pain [Unknown]
  - Psoriatic arthropathy [Unknown]
  - Joint range of motion decreased [Unknown]
  - Back pain [Unknown]
  - Vertebral lesion [Unknown]
